FAERS Safety Report 10626457 (Version 1)
Quarter: 2014Q4

REPORT INFORMATION
  Report Type: Spontaneous
  Country: US (occurrence: US)
  Receive Date: 20141204
  Receipt Date: 20141204
  Transmission Date: 20150529
  Serious: No
  Sender: FDA-Public Use
  Company Number: US-TARO-2014TAR00378

PATIENT

DRUGS (1)
  1. TOPICORT [Suspect]
     Active Substance: DESOXIMETASONE
     Indication: SKIN DISORDER
     Dosage: UNK UNK, 2X/WEEK

REACTIONS (1)
  - Headache [Unknown]
